FAERS Safety Report 7275796-4 (Version None)
Quarter: 2011Q1

REPORT INFORMATION
  Report Type: 
  Country: None (occurrence: None)
  Receive Date: 20110204
  Receipt Date: 20110114
  Transmission Date: 20110831
  Serious: No
  Sender: FDA-Public Use
  Company Number: US-B.I. PHARMACEUTICALS,INC./RIDGEFIELD-2011-BP-01959BP

PATIENT
  Age: 36 Year
  Sex: Female

DRUGS (2)
  1. SPIRIVA [Suspect]
     Dates: start: 20100501
  2. MEDICATION NOT OTHERWISE SPECIFIED [Concomitant]
     Indication: PSYCHIATRIC SYMPTOM

REACTIONS (2)
  - BLINDNESS UNILATERAL [None]
  - VISION BLURRED [None]
